FAERS Safety Report 21138887 (Version 1)
Quarter: 2022Q3

REPORT INFORMATION
  Report Type: Spontaneous
  Country: US (occurrence: None)
  Receive Date: 20220727
  Receipt Date: 20220727
  Transmission Date: 20221026
  Serious: Yes (Life-Threatening)
  Sender: FDA-Public Use
  Company Number: None

PATIENT
  Age: 61 Year
  Sex: Male

DRUGS (1)
  1. ENBREL [Suspect]
     Active Substance: ETANERCEPT
     Indication: Product used for unknown indication
     Dosage: FREQUENCY : AS DIRECTED;?
     Route: 058

REACTIONS (4)
  - Cerebrovascular accident [None]
  - Condition aggravated [None]
  - Pain [None]
  - Stress [None]

NARRATIVE: CASE EVENT DATE: 20220101
